FAERS Safety Report 8921274 (Version 2)
Quarter: 2012Q4

REPORT INFORMATION
  Report Type: 
  Country: FI (occurrence: FI)
  Receive Date: 20121121
  Receipt Date: 20121130
  Transmission Date: 20130627
  Serious: Yes (Other)
  Sender: FDA-Public Use
  Company Number: FI-ENDO PHARMACEUTICALS INC.-VANT20120082

PATIENT
  Sex: Male

DRUGS (4)
  1. VANTAS [Suspect]
     Indication: PROSTATE CANCER
     Route: 058
     Dates: start: 2012, end: 201211
  2. LIPITOR [Suspect]
     Indication: PRODUCT USED FOR UNKNOWN INDICATION
     Dosage: UNKNOWN
     Route: 048
     Dates: start: 2012
  3. REMERON [Concomitant]
     Indication: PRODUCT USED FOR UNKNOWN INDICATION
     Dosage: UNKNOWN
     Route: 065
  4. EMCONCOR [Concomitant]
     Indication: PRODUCT USED FOR UNKNOWN INDICATION
     Dosage: UNKNOWN
     Route: 065

REACTIONS (3)
  - Eye swelling [Recovering/Resolving]
  - Swelling face [Recovering/Resolving]
  - Oedema peripheral [Recovering/Resolving]
